FAERS Safety Report 10994328 (Version 2)
Quarter: 2016Q1

REPORT INFORMATION
  Report Type: Report from Study
  Country: US (occurrence: US)
  Receive Date: 20150407
  Receipt Date: 20160129
  Transmission Date: 20160525
  Serious: Yes (Other)
  Sender: FDA-Public Use
  Company Number: US-AMGEN-USASL2015031998

PATIENT
  Age: 67 Year
  Sex: Female

DRUGS (2)
  1. ENBREL [Suspect]
     Active Substance: ETANERCEPT
     Dosage: UNK
     Route: 065
  2. ENBREL [Suspect]
     Active Substance: ETANERCEPT
     Indication: RHEUMATOID ARTHRITIS
     Dosage: 50 MG, QWK
     Route: 065
     Dates: start: 1998

REACTIONS (7)
  - Spinal pain [Unknown]
  - Back pain [Unknown]
  - Condition aggravated [Unknown]
  - Intervertebral disc disorder [Unknown]
  - Pain in extremity [Unknown]
  - Bronchitis [Recovered/Resolved]
  - Kidney infection [Recovered/Resolved]
